FAERS Safety Report 16231125 (Version 1)
Quarter: 2019Q2

REPORT INFORMATION
  Report Type: Spontaneous
  Country: DE (occurrence: DE)
  Receive Date: 20190424
  Receipt Date: 20190424
  Transmission Date: 20190711
  Serious: Yes (Hospitalization)
  Sender: FDA-Public Use
  Company Number: DE-AUROBINDO-AUR-APL-2019-021790

PATIENT

DRUGS (15)
  1. NORTRILEN [Interacting]
     Active Substance: NORTRIPTYLINE
     Indication: PRODUCT USED FOR UNKNOWN INDICATION
     Dosage: 25 MILLIGRAM, DAILY
     Route: 065
     Dates: start: 20170302, end: 20170305
  2. NORTRILEN [Interacting]
     Active Substance: NORTRIPTYLINE
     Dosage: 75 MILLIGRAM, DAILY
     Route: 065
     Dates: start: 20170310, end: 20170315
  3. NORTRILEN [Interacting]
     Active Substance: NORTRIPTYLINE
     Dosage: 50 MILLIGRAM, DAILY
     Route: 065
     Dates: start: 20170323
  4. CALCIUM SANDOZ [Concomitant]
     Active Substance: CALCIUM
     Indication: PRODUCT USED FOR UNKNOWN INDICATION
     Dosage: 500 MILLIGRAM, DAILY (SINCE RECORDING)
     Route: 065
  5. SIMVAHEXAL [Interacting]
     Active Substance: SIMVASTATIN
     Indication: PRODUCT USED FOR UNKNOWN INDICATION
     Dosage: 20 MILLIGRAM, DAILY (SINCE RECORDING)
     Route: 065
  6. MAGNESIUM [Concomitant]
     Active Substance: MAGNESIUM
     Indication: PRODUCT USED FOR UNKNOWN INDICATION
     Dosage: 150 MILLIGRAM, DAILY (SINCE RECORDING)
     Route: 065
  7. METOBETA [Interacting]
     Active Substance: METOPROLOL TARTRATE
     Indication: PRODUCT USED FOR UNKNOWN INDICATION
     Dosage: 190 MILLIGRAM, DAILY (SINCE RECORDING)
     Route: 065
  8. VIGANTOLETTEN [Interacting]
     Active Substance: CHOLECALCIFEROL
     Indication: PRODUCT USED FOR UNKNOWN INDICATION
     Dosage: 20000 INTERNATIONAL UNIT, DAILY (SINCE RECORDING)
     Route: 065
  9. NORTRILEN [Interacting]
     Active Substance: NORTRIPTYLINE
     Dosage: 100 MILLIGRAM, DAILY
     Route: 065
     Dates: start: 20170316, end: 20170322
  10. AMLODIPINE [Suspect]
     Active Substance: AMLODIPINE BESYLATE
     Indication: PRODUCT USED FOR UNKNOWN INDICATION
     Dosage: 5 MILLIGRAM, DAILY (SINCE RECORDING)
     Route: 065
  11. VENLAFAXINE [Interacting]
     Active Substance: VENLAFAXINE HYDROCHLORIDE
     Indication: PRODUCT USED FOR UNKNOWN INDICATION
     Dosage: 75 MILLIGRAM, DAILY
     Route: 065
     Dates: start: 20170310
  12. PLAVIX [Interacting]
     Active Substance: CLOPIDOGREL BISULFATE
     Indication: PRODUCT USED FOR UNKNOWN INDICATION
     Dosage: 75 MILLIGRAM, DAILY (SINCE RECORDING)
     Route: 065
  13. VALDOXAN [Concomitant]
     Active Substance: AGOMELATINE
     Indication: PRODUCT USED FOR UNKNOWN INDICATION
     Dosage: 50 MILLIGRAM, DAILY (DEPOSED 1 DAY BEFORE)
     Route: 065
  14. LITHIUM APOGEPHA [Concomitant]
     Active Substance: LITHIUM CARBONATE
     Indication: PRODUCT USED FOR UNKNOWN INDICATION
     Dosage: 225 MILLIGRAM, DAILY
     Route: 065
     Dates: start: 20170321
  15. NORTRILEN [Interacting]
     Active Substance: NORTRIPTYLINE
     Dosage: 50 MILLIGRAM, DAILY
     Route: 065
     Dates: start: 20170306, end: 20170309

REACTIONS (1)
  - Sleep disorder [Recovered/Resolved]

NARRATIVE: CASE EVENT DATE: 20170322
